FAERS Safety Report 4476950-7 (Version None)
Quarter: 2004Q4

REPORT INFORMATION
  Report Type: 
  Country: None (occurrence: None)
  Receive Date: 20041012
  Receipt Date: 20041004
  Transmission Date: 20050328
  Serious: Yes (Disabling, Other)
  Sender: FDA-Public Use
  Company Number: A-US2004-07422

PATIENT
  Age: 60 Year
  Sex: Male
  Weight: 71.7 kg

DRUGS (10)
  1. TRACLEER [Suspect]
     Indication: SKIN ULCER
     Dosage: SEE IMAGE
     Route: 048
     Dates: start: 20040622, end: 20040808
  2. TRACLEER [Suspect]
     Indication: SKIN ULCER
     Dosage: SEE IMAGE
     Route: 048
     Dates: start: 20040809, end: 20040831
  3. VICODIN [Concomitant]
  4. WELLBUTRIN [Concomitant]
  5. PREDNISONE [Concomitant]
  6. NEXIUM [Concomitant]
  7. TRAMADOL HCL [Concomitant]
  8. MULTIVITAMINS (ASCORBIC ACID, ERGOCALCIFEROL, FOLIC ACID, NICOTINAMIDE [Concomitant]
  9. PLAVIX [Concomitant]
  10. COZAAR [Concomitant]

REACTIONS (5)
  - EYE OEDEMA [None]
  - MACULAR OEDEMA [None]
  - OPTIC DISC DISORDER [None]
  - UVEITIS [None]
  - VISUAL ACUITY REDUCED [None]
